FAERS Safety Report 8832524 (Version 1)
Quarter: 2012Q4

REPORT INFORMATION
  Report Type: 
  Country: IT (occurrence: IT)
  Receive Date: 20121010
  Receipt Date: 20121010
  Transmission Date: 20130627
  Serious: Yes (Death)
  Sender: FDA-Public Use
  Company Number: IT-BAYER-2012-047794

PATIENT
  Age: 68 Year
  Sex: Male

DRUGS (7)
  1. ULTRAVIST [Suspect]
     Indication: COMPUTERISED TOMOGRAM
     Dosage: 120 ml, ONCE
     Route: 042
     Dates: start: 20120504, end: 20120504
  2. AMBISOME [AMPHOTERICIN B] [Concomitant]
     Dosage: UNK
  3. MEROPENEM [Concomitant]
     Dosage: UNK
  4. BACTRIM PERFUSIONE [Concomitant]
     Dosage: UNK
  5. ZOVIRAX [Concomitant]
     Dosage: UNK
     Route: 042
  6. ZYVOXID [Concomitant]
  7. MAALOX TC [Concomitant]
     Dosage: UNK
     Route: 048

REACTIONS (4)
  - Cardio-respiratory arrest [Fatal]
  - Dyspnoea [Fatal]
  - Acute pulmonary oedema [Fatal]
  - Myocardial infarction [Fatal]
